FAERS Safety Report 13885246 (Version 1)
Quarter: 2017Q3

REPORT INFORMATION
  Report Type: Spontaneous
  Country: FR (occurrence: FR)
  Receive Date: 20170821
  Receipt Date: 20170821
  Transmission Date: 20171127
  Serious: Yes (Hospitalization, Other)
  Sender: FDA-Public Use
  Company Number: FR-TEVA-797086ROM

PATIENT
  Age: 59 Year
  Sex: Female

DRUGS (3)
  1. LITHIUM. [Concomitant]
     Active Substance: LITHIUM
     Indication: BIPOLAR DISORDER
     Dates: start: 1990
  2. ESTREVA [Suspect]
     Active Substance: ESTRADIOL
     Indication: ANDROGENETIC ALOPECIA
     Dates: start: 1989
  3. ANDROCUR [Concomitant]
     Active Substance: CYPROTERONE ACETATE
     Indication: ANDROGENETIC ALOPECIA
     Dates: start: 1989

REACTIONS (1)
  - Intracranial meningioma malignant [Recovered/Resolved with Sequelae]
